FAERS Safety Report 24066111 (Version 1)
Quarter: 2024Q3

REPORT INFORMATION
  Report Type: Report from Study
  Country: US (occurrence: US)
  Receive Date: 20240709
  Receipt Date: 20240709
  Transmission Date: 20241016
  Serious: No
  Sender: ROCHE
  Company Number: US-ROCHE-10000010385

PATIENT

DRUGS (4)
  1. RITUXIMAB [Suspect]
     Active Substance: RITUXIMAB
     Indication: Multiple sclerosis
     Route: 065
  2. OCRELIZUMAB [Suspect]
     Active Substance: OCRELIZUMAB
     Indication: Multiple sclerosis
     Route: 065
  3. NATALIZUMAB [Suspect]
     Active Substance: NATALIZUMAB
     Indication: Multiple sclerosis
     Route: 065
  4. OFATUMUMAB [Suspect]
     Active Substance: OFATUMUMAB
     Indication: Multiple sclerosis
     Route: 065

REACTIONS (11)
  - Infection [Unknown]
  - Functional gastrointestinal disorder [Unknown]
  - Cognitive disorder [Unknown]
  - Influenza [Unknown]
  - Dizziness [Unknown]
  - Fatigue [Unknown]
  - Alopecia [Unknown]
  - Mobility decreased [Unknown]
  - Affective disorder [Unknown]
  - Paraesthesia [Unknown]
  - Visual impairment [Unknown]
